FAERS Safety Report 19774627 (Version 2)
Quarter: 2021Q3

REPORT INFORMATION
  Report Type: Report from Study
  Country: CA (occurrence: CA)
  Receive Date: 20210901
  Receipt Date: 20210924
  Transmission Date: 20211014
  Serious: Yes (Other)
  Sender: FDA-Public Use
  Company Number: CA-UCBSA-2021040438

PATIENT
  Age: 50 Year
  Sex: Female

DRUGS (2)
  1. CERTOLIZUMAB PEGOL PSA [Suspect]
     Active Substance: CERTOLIZUMAB PEGOL
     Dosage: 200 MILLIGRAM, EV 2 WEEKS(QOW)
     Route: 058
     Dates: start: 2021, end: 2021
  2. CERTOLIZUMAB PEGOL PSA [Suspect]
     Active Substance: CERTOLIZUMAB PEGOL
     Indication: PSORIATIC ARTHROPATHY
     Dosage: 400 MILLIGRAM, EV 2 WEEKS(QOW)
     Route: 058
     Dates: start: 20210513, end: 2021

REACTIONS (6)
  - Chills [Unknown]
  - Skin laceration [Unknown]
  - Lymphadenopathy [Not Recovered/Not Resolved]
  - Discomfort [Recovering/Resolving]
  - Oropharyngeal pain [Not Recovered/Not Resolved]
  - Oral infection [Unknown]

NARRATIVE: CASE EVENT DATE: 20210818
